FAERS Safety Report 7193808 (Version 3)
Quarter: 2013Q2

REPORT INFORMATION
  Report Type: Spontaneous
  Country: US (occurrence: US)
  Receive Date: 20091130
  Receipt Date: 20130627
  Transmission Date: 20140414
  Serious: Yes (Other)
  Sender: FDA-Public Use
  Company Number: US-BAYER-200937813NA

PATIENT
  Age: 26 Year
  Sex: Female

DRUGS (1)
  1. MIRENA [Suspect]
     Indication: CONTRACEPTION
     Dosage: 20 MCG/24HR, CONT
     Route: 015
     Dates: start: 200810, end: 20091028

REACTIONS (5)
  - Ectopic pregnancy with intrauterine device [Recovered/Resolved]
  - Abdominal pain upper [Recovered/Resolved]
  - Vaginal haemorrhage [Recovered/Resolved]
  - Drug ineffective [None]
  - Ruptured ectopic pregnancy [Recovered/Resolved]
